FAERS Safety Report 7372353-6 (Version None)
Quarter: 2011Q1

REPORT INFORMATION
  Report Type: 
  Country: None (occurrence: None)
  Receive Date: 20110324
  Receipt Date: 20110317
  Transmission Date: 20110831
  Serious: Yes (Other)
  Sender: FDA-Public Use
  Company Number: B0707871A

PATIENT
  Sex: Male
  Weight: 85 kg

DRUGS (2)
  1. PLENDIL [Concomitant]
     Indication: HYPERTENSION
     Route: 065
     Dates: start: 19940101
  2. LAMOTRIGINE [Suspect]
     Indication: EPILEPSY
     Dosage: 100MG PER DAY
     Route: 065
     Dates: start: 20050101, end: 20100101

REACTIONS (4)
  - CHRONIC OBSTRUCTIVE PULMONARY DISEASE [None]
  - DIARRHOEA [None]
  - MENTAL IMPAIRMENT [None]
  - SOMNOLENCE [None]
